FAERS Safety Report 21113335 (Version 1)
Quarter: 2022Q3

REPORT INFORMATION
  Report Type: Spontaneous
  Country: CN (occurrence: CN)
  Receive Date: 20220721
  Receipt Date: 20220721
  Transmission Date: 20221026
  Serious: Yes (Other)
  Sender: FDA-Public Use
  Company Number: CN-009507513-2207CHN005197

PATIENT
  Sex: Male
  Weight: 46 kg

DRUGS (2)
  1. CILASTATIN SODIUM\IMIPENEM [Suspect]
     Active Substance: CILASTATIN SODIUM\IMIPENEM
     Indication: Anti-infective therapy
     Dosage: 1 GRAM (G), EVERY 12 HOURS (Q12H)
     Route: 041
     Dates: start: 20220619, end: 20220620
  2. DIFLUCAN [Concomitant]
     Active Substance: FLUCONAZOLE
     Indication: Anti-infective therapy
     Dosage: 300 MILLIGRAMS, DAILY (QD)
     Route: 041
     Dates: start: 20220619, end: 20220620

REACTIONS (11)
  - Parkinson^s disease [Unknown]
  - Cerebral atrophy [Unknown]
  - Asthenia [Recovering/Resolving]
  - Decreased appetite [Recovering/Resolving]
  - Muscle strength abnormal [Recovering/Resolving]
  - Blood pressure abnormal [Unknown]
  - Hypertonia [Unknown]
  - Resting tremor [Unknown]
  - Pigmentation disorder [Unknown]
  - Bone scan abnormal [Unknown]
  - Tongue disorder [Unknown]

NARRATIVE: CASE EVENT DATE: 20220101
